FAERS Safety Report 19300391 (Version 1)
Quarter: 2021Q2

REPORT INFORMATION
  Report Type: Spontaneous
  Country: US (occurrence: US)
  Receive Date: 20210525
  Receipt Date: 20210525
  Transmission Date: 20210717
  Serious: No
  Sender: FDA-Public Use
  Company Number: None

PATIENT
  Age: 75 Year
  Sex: Female
  Weight: 79.2 kg

DRUGS (13)
  1. ELIQUIS [Concomitant]
     Active Substance: APIXABAN
  2. MULTIVITAMIN [Concomitant]
     Active Substance: VITAMINS
  3. LOOP RECORDER [Concomitant]
  4. VITAMIN B12 [Concomitant]
     Active Substance: CYANOCOBALAMIN
  5. PROLIA [Suspect]
     Active Substance: DENOSUMAB
     Indication: OSTEOPOROSIS
  6. FLUTICASONE PROPIONATE. [Concomitant]
     Active Substance: FLUTICASONE PROPIONATE
  7. ATORVASTATIN [Concomitant]
     Active Substance: ATORVASTATIN
  8. LEFLUNOMIDE. [Concomitant]
     Active Substance: LEFLUNOMIDE
  9. FISH OIL [Concomitant]
     Active Substance: FISH OIL
  10. VITAMIN D [Concomitant]
     Active Substance: VITAMIN D NOS
  11. ATENOLOL. [Concomitant]
     Active Substance: ATENOLOL
  12. CALCIUM [Concomitant]
     Active Substance: CALCIUM
  13. COLLAGEN [Concomitant]
     Active Substance: COLLAGEN

REACTIONS (5)
  - Osteonecrosis [None]
  - Loose tooth [None]
  - Gingival recession [None]
  - Jaw disorder [None]
  - Feeling abnormal [None]

NARRATIVE: CASE EVENT DATE: 20210305
